FAERS Safety Report 25775931 (Version 1)
Quarter: 2025Q3

REPORT INFORMATION
  Report Type: Report from Study
  Country: US (occurrence: US)
  Receive Date: 20250909
  Receipt Date: 20250909
  Transmission Date: 20251020
  Serious: Yes (Other)
  Sender: ALEXION PHARMACEUTICALS
  Company Number: US-AstraZeneca-CH-00943455A

PATIENT
  Sex: Female
  Weight: 59 kg

DRUGS (10)
  1. CAPIVASERTIB [Suspect]
     Active Substance: CAPIVASERTIB
     Indication: Neoplasm malignant
     Dosage: 400 MILLIGRAM, BID
     Dates: start: 20250416
  2. BENZONATATE [Concomitant]
     Active Substance: BENZONATATE
     Route: 065
  3. Cvs melatonin [Concomitant]
     Route: 065
  4. DULOXETINE HYDROCHLORIDE [Concomitant]
     Active Substance: DULOXETINE HYDROCHLORIDE
     Route: 065
  5. FASLODEX [Concomitant]
     Active Substance: FULVESTRANT
     Route: 065
  6. FLUTICASONE FUROATE [Concomitant]
     Active Substance: FLUTICASONE FUROATE
     Route: 065
  7. PROCHLORPERAZINE MALEATE [Concomitant]
     Active Substance: PROCHLORPERAZINE MALEATE
     Route: 065
  8. VITAMIN C [Concomitant]
     Active Substance: ASCORBIC ACID
     Route: 065
  9. VITAMIN D3 [Concomitant]
     Active Substance: CHOLECALCIFEROL
     Route: 065
  10. GOSERELIN [Concomitant]
     Active Substance: GOSERELIN
     Route: 065

REACTIONS (2)
  - Spinal cord disorder [Not Recovered/Not Resolved]
  - Tumour marker increased [Unknown]
